FAERS Safety Report 24377093 (Version 1)
Quarter: 2024Q3

REPORT INFORMATION
  Report Type: Spontaneous
  Country: FR (occurrence: FR)
  Receive Date: 20240930
  Receipt Date: 20240930
  Transmission Date: 20241016
  Serious: Yes (Other)
  Sender: AMGEN
  Company Number: FR-ROCHE-10000079141

PATIENT
  Age: 73 Year
  Sex: Male
  Weight: 77.01 kg

DRUGS (10)
  1. BEVACIZUMAB [Suspect]
     Active Substance: BEVACIZUMAB
     Indication: Hepatocellular carcinoma
     Dosage: 1335 MILLIGRAM, Q3WK
     Route: 042
     Dates: start: 20240221
  2. ATEZOLIZUMAB [Suspect]
     Active Substance: ATEZOLIZUMAB
     Indication: Hepatocellular carcinoma
     Dosage: 1200 MILLIGRAM, Q3WK
     Route: 040
     Dates: start: 20240221
  3. TIRAGOLUMAB [Suspect]
     Active Substance: TIRAGOLUMAB
     Indication: Hepatocellular carcinoma
     Dosage: UNK, Q3WK
     Route: 040
     Dates: start: 20240221
  4. ACETAMINOPHEN [Concomitant]
     Active Substance: ACETAMINOPHEN
     Indication: Headache
     Dosage: 1 DOSAGE FORM, TID (MEDICATION DOSE 1 TABLET)
     Route: 048
     Dates: start: 20240223
  5. ACETAMINOPHEN [Concomitant]
     Active Substance: ACETAMINOPHEN
     Indication: Influenza
  6. CLARITHROMYCIN [Concomitant]
     Active Substance: CLARITHROMYCIN
     Indication: Lung disorder
     Dosage: 500 MILLIGRAM, BID
     Route: 048
     Dates: start: 20240626, end: 20240702
  7. LEVOTHYROXINE SODIUM [Concomitant]
     Active Substance: LEVOTHYROXINE SODIUM
     Indication: Thyroid disorder
     Dosage: 50 MICROGRAM, QD
     Route: 048
  8. FUROSEMIDE [Concomitant]
     Active Substance: FUROSEMIDE
     Indication: Ascites
     Dosage: 20 MILLIGRAM, QD
     Route: 048
     Dates: start: 20240807
  9. SPIRONOLACTONE [Concomitant]
     Active Substance: SPIRONOLACTONE
     Indication: Ascites
     Dosage: 50 MILLIGRAM, QD
     Route: 048
     Dates: start: 20240807
  10. CARVEDILOL [Concomitant]
     Active Substance: CARVEDILOL
     Indication: Hypertension
     Dosage: 1 DOSAGE FORM, BID
     Route: 048
     Dates: start: 20240403

REACTIONS (2)
  - Adrenal insufficiency [Not Recovered/Not Resolved]
  - Off label use [Unknown]

NARRATIVE: CASE EVENT DATE: 20240221
